FAERS Safety Report 26027961 (Version 2)
Quarter: 2025Q4

REPORT INFORMATION
  Report Type: Spontaneous
  Country: EU (occurrence: EU)
  Receive Date: 20251111
  Receipt Date: 20251205
  Transmission Date: 20260117
  Serious: Yes (Life-Threatening)
  Sender: CSL BEHRING
  Company Number: None

PATIENT
  Age: 66 Year
  Sex: Male
  Weight: 71 kg

DRUGS (2)
  1. PRIVIGEN [Suspect]
     Active Substance: HUMAN IMMUNOGLOBULIN G
     Dosage: 45 G, QD
     Route: 042
     Dates: start: 20250715, end: 20250717
  2. PRIVIGEN [Suspect]
     Active Substance: HUMAN IMMUNOGLOBULIN G
     Dosage: 45 G, QD
     Route: 042
     Dates: start: 20250715, end: 20250717

REACTIONS (2)
  - Cardio-respiratory arrest [Recovered/Resolved]
  - Acute coronary syndrome [Recovered/Resolved]

NARRATIVE: CASE EVENT DATE: 20250725
